FAERS Safety Report 6098632-0 (Version None)
Quarter: 2009Q1

REPORT INFORMATION
  Report Type: 
  Country: None (occurrence: None)
  Receive Date: 20090302
  Receipt Date: 20090226
  Transmission Date: 20090719
  Serious: Yes (Life-Threatening)
  Sender: FDA-Public Use
  Company Number: NL-ASTRAZENECA-2009AC00678

PATIENT
  Age: 53 Year
  Sex: Female
  Weight: 72 kg

DRUGS (1)
  1. ARIMIDEX [Suspect]
     Indication: BREAST CANCER
     Route: 048
     Dates: start: 20071130

REACTIONS (4)
  - DEEP VEIN THROMBOSIS [None]
  - FLUID RETENTION [None]
  - HOT FLUSH [None]
  - INTRAOCULAR PRESSURE INCREASED [None]
